FAERS Safety Report 6212334-9 (Version None)
Quarter: 2009Q2

REPORT INFORMATION
  Report Type: 
  Country: None (occurrence: None)
  Receive Date: 20090529
  Receipt Date: 20090514
  Transmission Date: 20091009
  Serious: Yes (Hospitalization)
  Sender: FDA-Public Use
  Company Number: 2009001479

PATIENT
  Age: 65 Year
  Sex: Male
  Weight: 100 kg

DRUGS (5)
  1. ERLOTINIB (ERLOTINIB) (TABLET) (ERLOTINIB) [Suspect]
     Indication: NON-SMALL CELL LUNG CANCER
     Dosage: 150 MG, QD, ORAL
     Route: 048
     Dates: start: 20081107
  2. SUNITINIB MALATE/ PLACEBO [Suspect]
     Indication: NON-SMALL CELL LUNG CANCER
     Dosage: 37.5 MG, QD, ORAL
     Route: 048
     Dates: start: 20081107
  3. DIHYDROCODEINE COMPOUND [Concomitant]
  4. SPIRIVA [Concomitant]
  5. LOPERAMIDE (LOPERAMIDE) [Concomitant]

REACTIONS (4)
  - ACNE [None]
  - ANORECTAL DISCOMFORT [None]
  - DIARRHOEA [None]
  - HAND-FOOT-AND-MOUTH DISEASE [None]
